FAERS Safety Report 17728295 (Version 1)
Quarter: 2020Q2

REPORT INFORMATION
  Report Type: Spontaneous
  Country: US (occurrence: US)
  Receive Date: 20200430
  Receipt Date: 20200430
  Transmission Date: 20200714
  Serious: Yes (Hospitalization, Other)
  Sender: FDA-Public Use
  Company Number: US-MICRO LABS LIMITED-ML2020-01429

PATIENT
  Age: 57 Year
  Sex: Female

DRUGS (1)
  1. VERAPAMIL HYDROCHLORIDE. [Suspect]
     Active Substance: VERAPAMIL HYDROCHLORIDE

REACTIONS (5)
  - Intentional overdose [Unknown]
  - Atrioventricular block complete [Unknown]
  - Vasoplegia syndrome [Unknown]
  - Left ventricle outflow tract obstruction [Unknown]
  - Cardiac septal hypertrophy [Unknown]
